FAERS Safety Report 16739840 (Version 1)
Quarter: 2019Q3

REPORT INFORMATION
  Report Type: Spontaneous
  Country: US (occurrence: US)
  Receive Date: 20190826
  Receipt Date: 20190826
  Transmission Date: 20191005
  Serious: No
  Sender: FDA-Public Use
  Company Number: US-MYLANLABS-2019M1075116

PATIENT
  Age: 69 Year
  Sex: Female
  Weight: 52 kg

DRUGS (1)
  1. DOXEPIN HYDROCHLORIDE CREAM [Suspect]
     Active Substance: DOXEPIN HYDROCHLORIDE
     Indication: PRURITUS
     Dosage: UNK
     Route: 061
     Dates: start: 20190806, end: 20190806

REACTIONS (3)
  - Blister [Not Recovered/Not Resolved]
  - Application site erythema [Not Recovered/Not Resolved]
  - Pruritus [Not Recovered/Not Resolved]

NARRATIVE: CASE EVENT DATE: 20190806
